FAERS Safety Report 11490570 (Version 2)
Quarter: 2017Q1

REPORT INFORMATION
  Report Type: Spontaneous
  Country: US (occurrence: US)
  Receive Date: 20150910
  Receipt Date: 20170224
  Transmission Date: 20170428
  Serious: Yes (Other)
  Sender: FDA-Public Use
  Company Number: US-ELI_LILLY_AND_COMPANY-US201509001338

PATIENT
  Sex: Female

DRUGS (3)
  1. CYMBALTA [Suspect]
     Active Substance: DULOXETINE HYDROCHLORIDE
     Indication: GENERALISED ANXIETY DISORDER
     Dosage: 30 MG, QD
     Route: 048
  2. CYMBALTA [Suspect]
     Active Substance: DULOXETINE HYDROCHLORIDE
     Indication: MAJOR DEPRESSION
     Dosage: 1 DF, UNKNOWN
     Route: 065
  3. CYMBALTA [Suspect]
     Active Substance: DULOXETINE HYDROCHLORIDE
     Dosage: 60 MG, QD
     Route: 048

REACTIONS (19)
  - Agitation [Unknown]
  - Dizziness [Unknown]
  - Mood swings [Unknown]
  - Suicidal ideation [Unknown]
  - Insomnia [Unknown]
  - Intentional self-injury [Unknown]
  - Irritability [Unknown]
  - Withdrawal syndrome [Unknown]
  - Depression [Unknown]
  - Anxiety [Unknown]
  - Dysphoria [Unknown]
  - Paraesthesia [Unknown]
  - Feeling abnormal [Unknown]
  - Nightmare [Unknown]
  - Vertigo [Unknown]
  - Aggression [Unknown]
  - Sleep disorder [Unknown]
  - Fatigue [Unknown]
  - Somnambulism [Unknown]
